FAERS Safety Report 9383386 (Version 2)
Quarter: 2013Q3

REPORT INFORMATION
  Report Type: Spontaneous
  Country: US (occurrence: US)
  Receive Date: 20130704
  Receipt Date: 20130805
  Transmission Date: 20140515
  Serious: No
  Sender: FDA-Public Use
  Company Number: US-009507513-1306USA014048

PATIENT
  Age: 19 Year
  Sex: Female

DRUGS (1)
  1. NEXPLANON [Suspect]
     Indication: CONTRACEPTION
     Dosage: 3 YEAR IMPLANT
     Route: 059
     Dates: start: 201304, end: 20130601

REACTIONS (7)
  - Medical device discomfort [Recovered/Resolved]
  - Medical device complication [Unknown]
  - Product quality issue [Unknown]
  - Device deployment issue [Recovered/Resolved]
  - Device dislocation [Recovered/Resolved]
  - Device difficult to use [Recovered/Resolved]
  - Implant site pain [Recovered/Resolved]
